FAERS Safety Report 4971216-0 (Version None)
Quarter: 2006Q2

REPORT INFORMATION
  Report Type: 
  Country: None (occurrence: None)
  Receive Date: 20060413
  Receipt Date: 20040903
  Transmission Date: 20061013
  Serious: Yes (Hospitalization)
  Sender: FDA-Public Use
  Company Number: CH-MERCK-0409CHE00009

PATIENT
  Age: 60 Year
  Sex: Female

DRUGS (6)
  1. VIOXX [Suspect]
     Indication: BACK PAIN
     Route: 048
     Dates: start: 20040802, end: 20040809
  2. TIZANIDINE HYDROCHLORIDE [Suspect]
     Route: 048
     Dates: start: 20040807, end: 20040807
  3. TIZANIDINE HYDROCHLORIDE [Suspect]
     Route: 048
     Dates: start: 20040808, end: 20040808
  4. TIZANIDINE HYDROCHLORIDE [Suspect]
     Route: 048
     Dates: start: 20040809, end: 20040809
  5. DICLOFENAC SODIUM [Suspect]
     Indication: BACK PAIN
     Route: 048
     Dates: start: 20040807, end: 20040809
  6. HERBS (UNSPECIFIED) [Concomitant]
     Route: 048

REACTIONS (2)
  - BRADYCARDIA [None]
  - HEPATIC ENZYME INCREASED [None]
